FAERS Safety Report 11801501 (Version 1)
Quarter: 2015Q4

REPORT INFORMATION
  Report Type: Spontaneous
  Country: DE (occurrence: DE)
  Receive Date: 20151204
  Receipt Date: 20151204
  Transmission Date: 20160305
  Serious: Yes (Congenital Anomaly, Other)
  Sender: FDA-Public Use
  Company Number: DE-SUN PHARMACEUTICAL INDUSTRIES LTD-2015RR-107058

PATIENT

DRUGS (6)
  1. VALDOXAN [Concomitant]
     Active Substance: AGOMELATINE
     Indication: DEPRESSION
     Dosage: 50 MG, DAILY
     Route: 064
     Dates: start: 20140511, end: 20140612
  2. TRAUMEEL [Concomitant]
     Indication: PAIN
     Route: 064
  3. BISOPROLOL [Suspect]
     Active Substance: BISOPROLOL
     Indication: HYPERTENSION
     Dosage: 5 MG, BID
     Route: 064
     Dates: start: 20140511, end: 20150220
  4. FEMIBION SCHWANGERSCHAFT 1 [Concomitant]
     Indication: PROPHYLAXIS OF NEURAL TUBE DEFECT
     Dosage: 0.8 MG, DAILY
     Route: 064
     Dates: start: 20140612, end: 20150220
  5. CETIRIZIN [Suspect]
     Active Substance: CETIRIZINE HYDROCHLORIDE
     Indication: HYPERSENSITIVITY
     Dosage: 10 MG, DAILY
     Route: 064
  6. NOVAMINSULFON [Concomitant]
     Active Substance: METAMIZOLE
     Indication: FIBROMYALGIA
     Dosage: UNK
     Route: 064
     Dates: start: 20140511, end: 20140617

REACTIONS (4)
  - Congenital hydronephrosis [Not Recovered/Not Resolved]
  - Large for dates baby [Unknown]
  - Reflux nephropathy [Not Recovered/Not Resolved]
  - Hydroureter [Not Recovered/Not Resolved]

NARRATIVE: CASE EVENT DATE: 20150220
